FAERS Safety Report 21721367 (Version 1)
Quarter: 2022Q4

REPORT INFORMATION
  Report Type: Report from Study
  Country: BE (occurrence: BE)
  Receive Date: 20221213
  Receipt Date: 20221213
  Transmission Date: 20230113
  Serious: Yes (Hospitalization)
  Sender: FDA-Public Use
  Company Number: BE-ASTELLAS-2022US043612

PATIENT
  Age: 70 Year
  Sex: Male

DRUGS (1)
  1. ENFORTUMAB VEDOTIN [Suspect]
     Active Substance: ENFORTUMAB VEDOTIN
     Indication: Transitional cell carcinoma
     Dosage: 1.25 MG/KG, CYCLIC (D1, D8, D15 ON 4 WEEK CYCLE)
     Route: 042
     Dates: start: 20221107

REACTIONS (3)
  - Blood calcium decreased [Unknown]
  - Diarrhoea [Unknown]
  - Nausea [Unknown]
